FAERS Safety Report 9601594 (Version 2)
Quarter: 2013Q4

REPORT INFORMATION
  Report Type: Report from Study
  Country: CA (occurrence: CA)
  Receive Date: 20131007
  Receipt Date: 20131007
  Transmission Date: 20140711
  Serious: Yes (Other)
  Sender: FDA-Public Use
  Company Number: CA-ROCHE-679852

PATIENT
  Age: 24 Year
  Sex: Male
  Weight: 70.3 kg

DRUGS (11)
  1. RITUXAN [Suspect]
     Indication: JUVENILE IDIOPATHIC ARTHRITIS
     Dosage: TAKEN ON DAY 1 AND DAY 15, FORM INFUSION, RECEIVED 3-4 INFUSIONS
     Route: 042
  2. NAPROXEN [Suspect]
     Indication: PRODUCT USED FOR UNKNOWN INDICATION
     Route: 048
  3. PREDNISONE [Concomitant]
     Indication: JUVENILE IDIOPATHIC ARTHRITIS
     Route: 048
  4. METHOTREXATE [Concomitant]
     Indication: JUVENILE IDIOPATHIC ARTHRITIS
     Route: 058
  5. SULFASALAZINE [Concomitant]
     Indication: JUVENILE IDIOPATHIC ARTHRITIS
     Route: 048
  6. SULFASALAZINE [Concomitant]
     Route: 048
  7. FOLIC ACID [Concomitant]
     Indication: JUVENILE IDIOPATHIC ARTHRITIS
     Route: 048
  8. ACLASTA [Concomitant]
     Route: 042
  9. TYLENOL [Concomitant]
     Dosage: AS NEEDED.
     Route: 048
  10. ACETAMINOPHEN [Concomitant]
     Indication: PREMEDICATION
     Route: 048
  11. METHYLPREDNISOLONE [Concomitant]
     Indication: PREMEDICATION
     Route: 042

REACTIONS (6)
  - Mental impairment [Not Recovered/Not Resolved]
  - Feeling abnormal [Not Recovered/Not Resolved]
  - Flushing [Not Recovered/Not Resolved]
  - Heart rate increased [Recovered/Resolved]
  - Feeling hot [Recovered/Resolved]
  - Weight increased [Not Recovered/Not Resolved]
